FAERS Safety Report 9813472 (Version 1)
Quarter: 2014Q1

REPORT INFORMATION
  Report Type: Spontaneous
  Country: US (occurrence: US)
  Receive Date: 20140113
  Receipt Date: 20140113
  Transmission Date: 20141002
  Serious: Yes (Death, Other)
  Sender: FDA-Public Use
  Company Number: US-CELGENEUS-163-21880-14010814

PATIENT
  Age: 42 Year
  Sex: Female

DRUGS (8)
  1. REVLIMID [Suspect]
     Indication: PLASMA CELL MYELOMA
     Route: 048
  2. THALOMID [Suspect]
     Indication: PLASMA CELL MYELOMA
     Route: 048
  3. DEXAMETHASONE [Concomitant]
     Indication: PLASMA CELL MYELOMA
     Route: 065
  4. CISPLATIN [Concomitant]
     Indication: PLASMA CELL MYELOMA
     Route: 065
  5. CYCLOPHOSPHAMIDE [Concomitant]
     Indication: PLASMA CELL MYELOMA
     Route: 065
  6. ETOPOSIDE [Concomitant]
     Indication: PLASMA CELL MYELOMA
     Route: 065
  7. DOXORUBICIN [Concomitant]
     Indication: PLASMA CELL MYELOMA
     Route: 065
  8. VINCRISTINE [Concomitant]
     Indication: PLASMA CELL MYELOMA
     Route: 065

REACTIONS (2)
  - Death [Fatal]
  - Plasma cell myeloma [Unknown]
